FAERS Safety Report 17718001 (Version 1)
Quarter: 2020Q2

REPORT INFORMATION
  Report Type: Spontaneous
  Country: DE (occurrence: DE)
  Receive Date: 20200428
  Receipt Date: 20200428
  Transmission Date: 20200714
  Serious: Yes (Life-Threatening, Hospitalization, Other)
  Sender: FDA-Public Use
  Company Number: DE-ACCORD-179639

PATIENT
  Age: 72 Year
  Sex: Female

DRUGS (5)
  1. UNACID [Concomitant]
  2. SIMVASTATIN. [Concomitant]
     Active Substance: SIMVASTATIN
  3. CEFTRIAXONE. [Concomitant]
     Active Substance: CEFTRIAXONE
  4. METHOTREXATE. [Suspect]
     Active Substance: METHOTREXATE
     Indication: PRODUCT USED FOR UNKNOWN INDICATION
     Dosage: 15 MG DAILY UP TO 1 WEEK BEFORE ADMISSION TO THE REPORTING CLINIC
     Route: 048
  5. METOPROLOL. [Concomitant]
     Active Substance: METOPROLOL

REACTIONS (4)
  - Pancytopenia [Unknown]
  - Agranulocytosis [Unknown]
  - Overdose [Unknown]
  - Medication error [Unknown]

NARRATIVE: CASE EVENT DATE: 20200320
